FAERS Safety Report 24900536 (Version 1)
Quarter: 2025Q1

REPORT INFORMATION
  Report Type: Spontaneous
  Country: US (occurrence: None)
  Receive Date: 20250129
  Receipt Date: 20250129
  Transmission Date: 20250408
  Serious: Yes (Hospitalization)
  Sender: FDA-CTU
  Company Number: None

PATIENT
  Age: 50 Year
  Sex: Female

DRUGS (1)
  1. CABOMETYX [Suspect]
     Active Substance: CABOZANTINIB S-MALATE
     Dosage: 40 MG DAILY ORAL
     Route: 048
     Dates: start: 20250122, end: 20250125

REACTIONS (2)
  - Hypertensive crisis [None]
  - Dyspnoea [None]

NARRATIVE: CASE EVENT DATE: 20250125
